FAERS Safety Report 9229668 (Version 1)
Quarter: 2013Q2

REPORT INFORMATION
  Report Type: Report from Study
  Country: FR (occurrence: FR)
  Receive Date: 20130415
  Receipt Date: 20130415
  Transmission Date: 20140414
  Serious: Yes (Hospitalization)
  Sender: FDA-Public Use
  Company Number: FR-BIOGENIDEC-2008BI011843

PATIENT
  Age: 45 Year
  Sex: Female
  Weight: 55 kg

DRUGS (2)
  1. TYSABRI [Suspect]
     Indication: MULTIPLE SCLEROSIS
     Route: 042
     Dates: start: 20070706, end: 20120424
  2. BROMAZEPAM [Concomitant]
     Indication: ANXIETY
     Dates: start: 2005, end: 20071130

REACTIONS (1)
  - Grand mal convulsion [Recovered/Resolved]
